FAERS Safety Report 7735744-7 (Version None)
Quarter: 2011Q3

REPORT INFORMATION
  Report Type: 
  Country: None (occurrence: None)
  Receive Date: 20110908
  Receipt Date: 20110831
  Transmission Date: 20111222
  Serious: Yes (Hospitalization, Other)
  Sender: FDA-Public Use
  Company Number: US-BIOGENIDEC-2008BI028789

PATIENT
  Age: 54 Year
  Sex: Male

DRUGS (7)
  1. CLONAZEPAM [Concomitant]
     Indication: CONVULSION
  2. LEVETIRACETAM [Concomitant]
     Indication: PRODUCT USED FOR UNKNOWN INDICATION
  3. TRAZODONE HCL [Concomitant]
     Indication: SLEEP DISORDER
  4. SIMVASTATIN [Concomitant]
     Indication: BLOOD CHOLESTEROL INCREASED
  5. FENOFIBRATE [Concomitant]
     Indication: PRODUCT USED FOR UNKNOWN INDICATION
  6. AVONEX [Suspect]
     Indication: MULTIPLE SCLEROSIS
     Route: 030
     Dates: start: 20000930
  7. VENLAFAXINE [Concomitant]
     Indication: ANXIETY

REACTIONS (4)
  - CONVULSION [None]
  - HEAT STROKE [None]
  - DEHYDRATION [None]
  - CYSTITIS [None]
